FAERS Safety Report 19489732 (Version 1)
Quarter: 2021Q3

REPORT INFORMATION
  Report Type: Spontaneous
  Country: US (occurrence: US)
  Receive Date: 20210704
  Receipt Date: 20210704
  Transmission Date: 20211014
  Serious: No
  Sender: FDA-Public Use
  Company Number: US-ASTRAZENECA-2021A528832

PATIENT
  Sex: Male
  Weight: 87.7 kg

DRUGS (4)
  1. CALQUENCE [Suspect]
     Active Substance: ACALABRUTINIB
     Indication: CHRONIC LYMPHOCYTIC LEUKAEMIA
     Route: 048
  2. GLUCOSE/SODIUM LACTATE/MAGNESIUM CHLORIDE/CALCIUM CHLORIDE [Concomitant]
  3. ALLEGRA?D [Concomitant]
     Active Substance: FEXOFENADINE HYDROCHLORIDE\PSEUDOEPHEDRINE HYDROCHLORIDE
  4. NAPROXEN. [Concomitant]
     Active Substance: NAPROXEN

REACTIONS (5)
  - Memory impairment [Unknown]
  - Intentional product misuse [Unknown]
  - Confusional state [Unknown]
  - Myalgia [Unknown]
  - Hypoaesthesia [Unknown]
